FAERS Safety Report 12745254 (Version 2)
Quarter: 2017Q1

REPORT INFORMATION
  Report Type: Spontaneous
  Country: GB (occurrence: GB)
  Receive Date: 20160915
  Receipt Date: 20170202
  Transmission Date: 20170428
  Serious: Yes (Death, Life-Threatening, Hospitalization, Disabling)
  Sender: FDA-Public Use
  Company Number: GB-ACCORD-043917

PATIENT
  Age: 36 Year
  Sex: Female

DRUGS (7)
  1. SERTRALINE [Concomitant]
     Active Substance: SERTRALINE HYDROCHLORIDE
  2. MORPHINE [Concomitant]
     Active Substance: MORPHINE
  3. OXALIPLATIN. [Concomitant]
     Active Substance: OXALIPLATIN
  4. DOMPERIDONE [Concomitant]
     Active Substance: DOMPERIDONE
  5. MERCAPTOPURINE/MERCAPTOPURINE ANHYDROUS [Concomitant]
     Dates: start: 2009, end: 201606
  6. FLUOROURACIL. [Suspect]
     Active Substance: FLUOROURACIL
     Indication: COLORECTAL ADENOCARCINOMA
     Dosage: 625MG BOLUS?ALSO RECEIVED 3775 MG/46 HOURS IN A CONTINUOUS INFUSION PUMP
     Route: 042
     Dates: start: 20160808, end: 20160810
  7. DEXAMETHASONE. [Concomitant]
     Active Substance: DEXAMETHASONE

REACTIONS (4)
  - Angina pectoris [Not Recovered/Not Resolved]
  - Seizure [Not Recovered/Not Resolved]
  - Brain injury [Fatal]
  - Cardiac arrest [Not Recovered/Not Resolved]

NARRATIVE: CASE EVENT DATE: 20160810
